FAERS Safety Report 6440136-7 (Version None)
Quarter: 2009Q4

REPORT INFORMATION
  Report Type: 
  Country: None (occurrence: None)
  Receive Date: 20091113
  Receipt Date: 20090206
  Transmission Date: 20100525
  Serious: No
  Sender: FDA-Public Use
  Company Number: A0767458A

PATIENT
  Age: 58 Year
  Sex: Male

DRUGS (5)
  1. COREG [Suspect]
     Indication: HYPERTENSION
     Dosage: 6.25MG TWICE PER DAY
     Route: 048
     Dates: start: 20081225
  2. LISINOPRIL [Suspect]
     Route: 048
     Dates: start: 20090108
  3. LISINOPRIL [Concomitant]
  4. PRAVACHOL [Concomitant]
  5. OMACOR [Concomitant]

REACTIONS (3)
  - COUGH [None]
  - DRUG INTERACTION [None]
  - NAUSEA [None]
